FAERS Safety Report 15639611 (Version 1)
Quarter: 2018Q4

REPORT INFORMATION
  Report Type: Spontaneous
  Country: CA (occurrence: TR)
  Receive Date: 20181120
  Receipt Date: 20181120
  Transmission Date: 20190205
  Serious: Yes (Death)
  Sender: FDA-Public Use
  Company Number: TR-BIO PRODUCTS LABORATORY LTD-2059075

PATIENT
  Age: 54 Year
  Sex: Male

DRUGS (3)
  1. CORTICOSTEROID [Concomitant]
     Active Substance: CORTICOSTEROID NOS
  2. GENERIC IVIG [Suspect]
     Active Substance: HUMAN IMMUNOGLOBULIN G
     Route: 042
  3. AMITRIPTYLINE [Concomitant]
     Active Substance: AMITRIPTYLINE

REACTIONS (2)
  - Off label use [Fatal]
  - Drug ineffective for unapproved indication [Fatal]
